FAERS Safety Report 14668992 (Version 1)
Quarter: 2018Q1

REPORT INFORMATION
  Report Type: Other
  Country: US (occurrence: US)
  Receive Date: 20180322
  Receipt Date: 20180322
  Transmission Date: 20180509
  Serious: Yes (Hospitalization, Congenital Anomaly)
  Sender: FDA-Public Use
  Company Number: US-NAVINTA LLC-000055

PATIENT

DRUGS (2)
  1. INDOMETACIN [Suspect]
     Active Substance: INDOMETHACIN
     Indication: PREMATURE LABOUR
     Route: 064
  2. INDOMETACIN [Suspect]
     Active Substance: INDOMETHACIN
     Indication: PROPHYLAXIS
     Route: 064

REACTIONS (4)
  - Twin reversed arterial perfusion sequence malformation [Unknown]
  - Anencephaly [Unknown]
  - Congenital cardiovascular anomaly [Unknown]
  - Foetal exposure during pregnancy [Unknown]
